FAERS Safety Report 10163576 (Version 2)
Quarter: 2014Q2

REPORT INFORMATION
  Report Type: Report from Study
  Country: JP (occurrence: JP)
  Receive Date: 20140509
  Receipt Date: 20140619
  Transmission Date: 20141212
  Serious: Yes (Life-Threatening, Hospitalization, Other)
  Sender: FDA-Public Use
  Company Number: JP-GILEAD-2014-0101450

PATIENT
  Age: 43 Year
  Sex: Female
  Weight: 38 kg

DRUGS (32)
  1. AMBRISENTAN [Suspect]
     Indication: PULMONARY ARTERIAL HYPERTENSION
     Dosage: 2.5 MG, BID
     Route: 048
     Dates: start: 20120416, end: 20120925
  2. BACTRAMIN [Suspect]
     Indication: PRODUCT USED FOR UNKNOWN INDICATION
     Route: 048
     Dates: end: 20120831
  3. BACTRAMIN [Suspect]
     Dosage: UNK
     Route: 048
     Dates: start: 20121019
  4. PROGRAF [Suspect]
     Indication: PRODUCT USED FOR UNKNOWN INDICATION
     Dosage: UNK
     Route: 048
  5. PROGRAF [Suspect]
     Dosage: UNK
     Route: 048
     Dates: start: 20121113
  6. PROGRAF [Suspect]
     Route: 048
  7. ADCIRCA [Concomitant]
     Indication: PULMONARY ARTERIAL HYPERTENSION
     Route: 048
     Dates: end: 20120507
  8. TETRAMIDE [Concomitant]
     Route: 048
  9. TETRAMIDE [Concomitant]
     Route: 048
  10. PREDONINE                          /00016201/ [Concomitant]
     Route: 048
     Dates: end: 20120528
  11. MEDETAX [Concomitant]
     Route: 048
  12. MEDETAX [Concomitant]
     Route: 048
  13. PARIET [Concomitant]
     Route: 048
     Dates: end: 20121116
  14. MUCOSTA [Concomitant]
     Route: 048
     Dates: end: 20121116
  15. CALFINA [Concomitant]
     Indication: PROPHYLAXIS
     Route: 048
  16. CALFINA [Concomitant]
     Route: 048
  17. ALLELOCK [Concomitant]
     Route: 048
     Dates: end: 20120507
  18. CELECOX [Concomitant]
     Route: 048
     Dates: end: 20121116
  19. HALCION [Concomitant]
     Route: 048
  20. HALCION [Concomitant]
     Route: 048
  21. PROMAC                             /01312301/ [Concomitant]
     Route: 048
  22. UNKNOWN [Concomitant]
     Route: 048
  23. UNKNOWN [Concomitant]
     Route: 048
  24. FERROMIA [Concomitant]
     Route: 048
     Dates: start: 20120508, end: 20120607
  25. BREDININ [Concomitant]
     Route: 048
     Dates: start: 20120924, end: 20130120
  26. ALFAROL [Concomitant]
     Indication: PROPHYLAXIS
     Route: 048
     Dates: start: 20121116
  27. HIRUDOID                           /00723701/ [Concomitant]
     Route: 061
  28. WHITE PETROLATUM [Concomitant]
     Route: 065
  29. WHITE PETROLATUM [Concomitant]
     Route: 065
  30. ACTEMRA [Concomitant]
     Dates: end: 20120625
  31. TAKEPRON [Concomitant]
     Route: 048
     Dates: start: 20121116
  32. HIRUDOID                           /00723701/ [Concomitant]
     Route: 061

REACTIONS (8)
  - Ileus [Recovering/Resolving]
  - Pseudomembranous colitis [Recovering/Resolving]
  - Pneumonia bacterial [Recovering/Resolving]
  - Clostridium difficile colitis [Recovering/Resolving]
  - Interstitial lung disease [Recovering/Resolving]
  - Hypotension [Recovering/Resolving]
  - Otitis media [Recovered/Resolved]
  - Tachycardia [Recovered/Resolved]
